FAERS Safety Report 5599484-5 (Version None)
Quarter: 2007Q4

REPORT INFORMATION
  Report Type: 
  Country: None (occurrence: None)
  Receive Date: 20071227
  Receipt Date: 20070319
  Transmission Date: 20080405
  Serious: Yes (Disabling)
  Sender: FDA-Public Use
  Company Number: 2007030022

PATIENT
  Age: 50 Year
  Sex: Female

DRUGS (15)
  1. ASTELIN [Suspect]
     Indication: PARANASAL SINUS HYPERSECRETION
     Dosage: 2 SPRAYS/NOSTRIL HS, IN
     Dates: start: 20070209, end: 20070216
  2. ASTELIN [Suspect]
     Indication: UPPER RESPIRATORY TRACT INFECTION
     Dosage: 2 SPRAYS/NOSTRIL HS, IN
     Dates: start: 20070209, end: 20070216
  3. COUGH MEDICATION [Concomitant]
  4. ENBREL [Concomitant]
  5. FOSAMAX [Concomitant]
  6. AZATHIOPRINE [Concomitant]
  7. PRILOSEC [Concomitant]
  8. ZOCOR [Concomitant]
  9. BUPROPION HCL [Concomitant]
  10. LOTREL [Concomitant]
  11. HYDROCHLOROTHIAZIDE [Concomitant]
  12. ACTOS [Concomitant]
  13. DICLOFENAC [Concomitant]
  14. FLUOXETINE [Concomitant]
  15. ASPIRIN [Concomitant]

REACTIONS (2)
  - AGEUSIA [None]
  - ANOSMIA [None]
